FAERS Safety Report 4594751-6 (Version None)
Quarter: 2005Q1

REPORT INFORMATION
  Report Type: 
  Country: None (occurrence: None)
  Receive Date: 20050223
  Receipt Date: 20050215
  Transmission Date: 20050727
  Serious: Yes (Other)
  Sender: FDA-Public Use
  Company Number: 2005033133

PATIENT
  Age: 56 Year
  Sex: Female
  Weight: 67.1324 kg

DRUGS (2)
  1. CLEOCIN PEDIATRIC FLAVORED (CLINDAMYCIN PALMITATE HYDROCHLORIDE) [Suspect]
     Indication: TOOTH INFECTION
     Dosage: SEE IMAGE
     Route: 048
     Dates: start: 20050209, end: 20050214
  2. CLEOCIN PEDIATRIC FLAVORED (CLINDAMYCIN PALMITATE HYDROCHLORIDE) [Suspect]
     Indication: TOOTH INFECTION
     Dosage: SEE IMAGE
     Route: 048
     Dates: start: 20050101

REACTIONS (9)
  - ABDOMINAL PAIN UPPER [None]
  - ANOREXIA [None]
  - ASTHENIA [None]
  - DIARRHOEA HAEMORRHAGIC [None]
  - DISEASE RECURRENCE [None]
  - DRY MOUTH [None]
  - NAUSEA [None]
  - PALPITATIONS [None]
  - SYNCOPE [None]
